FAERS Safety Report 10058170 (Version 1)
Quarter: 2014Q2

REPORT INFORMATION
  Report Type: Spontaneous
  Country: US (occurrence: US)
  Receive Date: 20140404
  Receipt Date: 20140404
  Transmission Date: 20141212
  Serious: No
  Sender: FDA-Public Use
  Company Number: US-PFIZER INC-2014095088

PATIENT
  Sex: Female

DRUGS (2)
  1. ADVIL [Suspect]
     Indication: BACK PAIN
     Dosage: UNK
  2. ADVIL [Suspect]
     Indication: NEURALGIA

REACTIONS (3)
  - Chest pain [Unknown]
  - Burning sensation [Unknown]
  - Asthenia [Unknown]
